FAERS Safety Report 8879973 (Version 2)
Quarter: 2012Q4

REPORT INFORMATION
  Report Type: 
  Country: NL (occurrence: NL)
  Receive Date: 20121101
  Receipt Date: 20121109
  Transmission Date: 20130627
  Serious: Yes (Other)
  Sender: FDA-Public Use
  Company Number: NL-AMGEN-NLDSP2012069080

PATIENT
  Age: 78 Year
  Sex: Female

DRUGS (3)
  1. ENBREL [Suspect]
     Indication: PSORIASIS
     Dosage: 25 mg, 2x/week
  2. ENBREL [Suspect]
     Dosage: 50 mg, weekly
     Dates: start: 2009
  3. ANTIHYPERTENSIVES [Concomitant]
     Dosage: UNK

REACTIONS (2)
  - Nephrolithiasis [Recovered/Resolved]
  - Gastroenteritis bacterial [Recovered/Resolved]
